FAERS Safety Report 25755184 (Version 9)
Quarter: 2025Q4

REPORT INFORMATION
  Report Type: Report from Study
  Country: US (occurrence: US)
  Receive Date: 20250903
  Receipt Date: 20251121
  Transmission Date: 20260117
  Serious: Yes (Hospitalization, Other)
  Sender: ABBVIE
  Company Number: US-ABBVIE-6443000

PATIENT
  Age: 24 Year
  Sex: Male
  Weight: 79.378 kg

DRUGS (14)
  1. HUMIRA [Suspect]
     Active Substance: ADALIMUMAB
     Indication: Product used for unknown indication
     Route: 058
  2. SKYRIZI [Suspect]
     Active Substance: RISANKIZUMAB-RZAA
     Indication: Crohn^s disease
     Route: 058
  3. RINVOQ [Suspect]
     Active Substance: UPADACITINIB
     Indication: Crohn^s disease
     Dosage: FORM STRENGTH: 45 MILLIGRAM
     Route: 048
     Dates: start: 202405, end: 202406
  4. RINVOQ [Suspect]
     Active Substance: UPADACITINIB
     Indication: Crohn^s disease
     Dosage: FORM STRENGTH: 30 MILLIGRAM
     Route: 048
     Dates: start: 202407
  5. RINVOQ [Suspect]
     Active Substance: UPADACITINIB
     Indication: Crohn^s disease
     Dosage: FORM STRENGTH: 30 MILLIGRAM
     Route: 048
     Dates: start: 20250116, end: 202506
  6. TRAMADOL [Suspect]
     Active Substance: TRAMADOL
     Indication: Pain
     Route: 065
  7. HERBALS\MITRAGYNINE [Suspect]
     Active Substance: HERBALS\MITRAGYNINE
     Indication: Pain
     Dosage: FORM STRENGTH: 14 MILLIGRAM
     Route: 048
     Dates: start: 202507, end: 20250903
  8. HERBALS\MITRAGYNINE [Suspect]
     Active Substance: HERBALS\MITRAGYNINE
     Indication: Pain
     Dosage: FORM STRENGTH: 14 MILLIGRAM
     Route: 048
     Dates: start: 202501, end: 202507
  9. GABAPENTIN [Concomitant]
     Active Substance: GABAPENTIN
     Indication: Anxiety
  10. BENTYL [Concomitant]
     Active Substance: DICYCLOMINE HYDROCHLORIDE
     Indication: Abdominal pain upper
  11. IMODIUM [Concomitant]
     Active Substance: LOPERAMIDE HYDROCHLORIDE
     Indication: Product used for unknown indication
  12. AMJEVITA [Concomitant]
     Active Substance: ADALIMUMAB-ATTO
     Indication: Crohn^s disease
     Dosage: UNKNOWN
     Route: 058
  13. AMJEVITA [Concomitant]
     Active Substance: ADALIMUMAB-ATTO
     Indication: Crohn^s disease
     Dosage: UNKNOWN
     Route: 058
  14. TYLENOL [Suspect]
     Active Substance: ACETAMINOPHEN
     Indication: Product used for unknown indication
     Route: 065

REACTIONS (24)
  - Suicidal ideation [Recovered/Resolved]
  - Faecal calprotectin increased [Not Recovered/Not Resolved]
  - Inflammatory marker increased [Recovering/Resolving]
  - Pain [Recovering/Resolving]
  - Depression [Recovering/Resolving]
  - Drainage [Recovering/Resolving]
  - Fistula discharge [Recovered/Resolved]
  - Hypersomnia [Recovering/Resolving]
  - Anal fistula [Not Recovered/Not Resolved]
  - Illness [Unknown]
  - Drug dependence [Recovered/Resolved]
  - Rectal discharge [Recovering/Resolving]
  - Fistula [Not Recovered/Not Resolved]
  - Drug dependence [Recovered/Resolved]
  - Proctalgia [Recovered/Resolved]
  - Anxiety [Recovered/Resolved]
  - Mental disorder [Unknown]
  - Drug ineffective [Unknown]
  - Abscess [Not Recovered/Not Resolved]
  - Depression [Not Recovered/Not Resolved]
  - Crohn^s disease [Unknown]
  - Drug dependence [Recovered/Resolved]
  - Feeling of despair [Unknown]
  - Hospitalisation [Recovered/Resolved]

NARRATIVE: CASE EVENT DATE: 20231101
